FAERS Safety Report 9394465 (Version 4)
Quarter: 2014Q1

REPORT INFORMATION
  Report Type: Spontaneous
  Country: FR (occurrence: FR)
  Receive Date: 20130711
  Receipt Date: 20140218
  Transmission Date: 20141002
  Serious: Yes (Other)
  Sender: FDA-Public Use
  Company Number: FR-TEVA-418283USA

PATIENT
  Age: 80 Year
  Sex: Male

DRUGS (16)
  1. LEVACT [Suspect]
     Indication: PLASMA CELL MYELOMA
     Route: 042
     Dates: start: 20130517
  2. LEVACT [Suspect]
     Route: 042
     Dates: start: 20130615
  3. LEVACT [Suspect]
     Route: 042
     Dates: start: 20130715
  4. PREDNISONE [Concomitant]
     Dates: start: 20130517
  5. PAMIDRONATE DE SODIUM MERCK GENERIQUES [Concomitant]
     Route: 042
     Dates: start: 20130513, end: 20130513
  6. IMOVANE [Concomitant]
  7. CRESTOR [Concomitant]
  8. OLMETEC [Concomitant]
  9. ZALDIAR [Concomitant]
  10. NEODEX [Concomitant]
     Dates: start: 20130514
  11. LANSOYL [Concomitant]
  12. TRANSIPEG [Concomitant]
  13. NOVOMIX [Concomitant]
  14. NOVORAPID [Concomitant]
  15. PIASCLEDINE [Concomitant]
  16. INEXIUM [Concomitant]

REACTIONS (3)
  - Lymphangitis [Recovering/Resolving]
  - Venous thrombosis [Recovering/Resolving]
  - Infusion site necrosis [Recovering/Resolving]
